FAERS Safety Report 18787512 (Version 10)
Quarter: 2021Q1

REPORT INFORMATION
  Report Type: Spontaneous
  Country: GB (occurrence: GB)
  Receive Date: 20210126
  Receipt Date: 20210311
  Transmission Date: 20210419
  Serious: Yes (Other)
  Sender: FDA-Public Use
  Company Number: GB-PFIZER INC-2021033316

PATIENT
  Sex: Female

DRUGS (19)
  1. REMSIMA [Suspect]
     Active Substance: INFLIXIMAB
     Dosage: 400 MG
     Route: 065
  2. SODIUM CHLORIDE. [Suspect]
     Active Substance: SODIUM CHLORIDE
     Dosage: UNK (DOSAGE FORM: 231)
     Route: 065
  3. REMSIMA [Suspect]
     Active Substance: INFLIXIMAB
     Dosage: 410 MG
     Route: 065
  4. WATER FOR INJECTION [Suspect]
     Active Substance: WATER
     Dosage: UNK (DOSAGE FORM: 236)
     Route: 065
  5. SODIUM CHLORIDE. [Suspect]
     Active Substance: SODIUM CHLORIDE
     Dosage: UNK (DOSAGE FORM: 231)
     Route: 065
  6. WATER FOR INJECTION [Suspect]
     Active Substance: WATER
     Dosage: UNK (DOSAGE FORM: 236)
     Route: 065
  7. REMSIMA [Suspect]
     Active Substance: INFLIXIMAB
     Dosage: 410 MG
     Route: 065
  8. SODIUM CHLORIDE. [Suspect]
     Active Substance: SODIUM CHLORIDE
     Dosage: UNK (DOSAGE FORM: 231)
     Route: 065
  9. WATER FOR INJECTION [Suspect]
     Active Substance: WATER
     Dosage: UNK (DOSAGE FORM: 236)
     Route: 065
  10. REMSIMA [Suspect]
     Active Substance: INFLIXIMAB
     Dosage: 400 MG
     Route: 065
  11. WATER FOR INJECTION [Suspect]
     Active Substance: WATER
     Indication: MEDICATION DILUTION
     Dosage: UNK (DOSAGE FORM: 236)
     Route: 065
  12. SODIUM CHLORIDE. [Suspect]
     Active Substance: SODIUM CHLORIDE
     Dosage: UNK (DOSAGE FORM: 231)
     Route: 065
  13. SODIUM CHLORIDE. [Suspect]
     Active Substance: SODIUM CHLORIDE
     Dosage: UNK (DOSAGE FORM: 231)
     Route: 065
  14. SODIUM CHLORIDE. [Suspect]
     Active Substance: SODIUM CHLORIDE
     Indication: MEDICATION DILUTION
     Dosage: UNK (DOSAGE FORM: 231)
     Route: 065
  15. WATER FOR INJECTION [Suspect]
     Active Substance: WATER
     Dosage: UNK (DOSAGE FORM: 236)
     Route: 065
  16. WATER FOR INJECTION [Suspect]
     Active Substance: WATER
     Dosage: UNK (DOSAGE FORM: 236)
     Route: 065
  17. REMSIMA [Suspect]
     Active Substance: INFLIXIMAB
     Dosage: 410 MG
     Route: 065
  18. SODIUM CHLORIDE. [Suspect]
     Active Substance: SODIUM CHLORIDE
     Dosage: UNK (DOSAGE FORM: 231)
     Route: 065
  19. SODIUM CHLORIDE. [Suspect]
     Active Substance: SODIUM CHLORIDE
     Dosage: UNK (DOSAGE FORM: 231)
     Route: 065

REACTIONS (3)
  - Haematochezia [Unknown]
  - Defaecation urgency [Unknown]
  - Mucous stools [Unknown]

NARRATIVE: CASE EVENT DATE: 202012
